FAERS Safety Report 15284855 (Version 1)
Quarter: 2018Q3

REPORT INFORMATION
  Report Type: Report from Study
  Country: IN (occurrence: IN)
  Receive Date: 20180816
  Receipt Date: 20180816
  Transmission Date: 20181010
  Serious: Yes (Other)
  Sender: FDA-Public Use
  Company Number: IN-BAYER-2018-147458

PATIENT
  Age: 80 Year
  Sex: Male

DRUGS (1)
  1. NEXAVAR [Suspect]
     Active Substance: SORAFENIB
     Indication: HEPATOCELLULAR CARCINOMA
     Dosage: DAILY DOSE 400 MG
     Route: 048
     Dates: start: 20180528, end: 2018

REACTIONS (15)
  - General physical health deterioration [None]
  - Blood albumin decreased [None]
  - Adverse drug reaction [None]
  - Drug ineffective [None]
  - Palmar-plantar erythrodysaesthesia syndrome [Not Recovered/Not Resolved]
  - Drug intolerance [None]
  - Dry eye [Not Recovered/Not Resolved]
  - Food refusal [None]
  - Skin exfoliation [Not Recovered/Not Resolved]
  - Decreased appetite [Not Recovered/Not Resolved]
  - Asthenia [None]
  - Skin exfoliation [None]
  - Vomiting [Not Recovered/Not Resolved]
  - Liver function test abnormal [None]
  - Dry skin [Not Recovered/Not Resolved]

NARRATIVE: CASE EVENT DATE: 2018
